FAERS Safety Report 10249072 (Version 1)
Quarter: 2014Q2

REPORT INFORMATION
  Report Type: Spontaneous
  Country: GB (occurrence: GB)
  Receive Date: 20140620
  Receipt Date: 20140620
  Transmission Date: 20141212
  Serious: Yes (Hospitalization)
  Sender: FDA-Public Use
  Company Number: GB-ASTRAZENECA-2014SE41177

PATIENT
  Age: 72 Year
  Sex: Female
  Weight: 61 kg

DRUGS (8)
  1. TICAGRELOR [Suspect]
     Indication: CORONARY ARTERIAL STENT INSERTION
     Route: 048
     Dates: start: 20140224, end: 20140601
  2. AMLODIPINE [Suspect]
     Indication: ANGINA PECTORIS
     Route: 048
     Dates: start: 20140406, end: 20140601
  3. AMLODIPINE [Suspect]
     Indication: HYPERTENSION
     Route: 048
     Dates: start: 20140406, end: 20140601
  4. ASPIRIN [Concomitant]
  5. ATORVASTATIN [Concomitant]
  6. DILTIAZEM [Concomitant]
  7. OMEPRAZOLE [Concomitant]
  8. RAMIPRIL [Concomitant]

REACTIONS (5)
  - Joint swelling [Recovered/Resolved]
  - Brain natriuretic peptide increased [Recovered/Resolved]
  - Chest pain [Unknown]
  - Cardiac failure [Unknown]
  - Dyspnoea [Recovered/Resolved]
